FAERS Safety Report 14386682 (Version 2)
Quarter: 2018Q3

REPORT INFORMATION
  Report Type: Spontaneous
  Country: US (occurrence: US)
  Receive Date: 20180115
  Receipt Date: 20180702
  Transmission Date: 20181010
  Serious: Yes (Other)
  Sender: FDA-Public Use
  Company Number: US-SA-2017SA104763

PATIENT
  Age: 60 Year
  Sex: Female
  Weight: 58.96 kg

DRUGS (13)
  1. PIOGLITAZONE. [Concomitant]
     Active Substance: PIOGLITAZONE
     Dosage: UNK UNK,UNK
     Route: 065
     Dates: start: 2009
  2. TRASTUZUMAB. [Concomitant]
     Active Substance: TRASTUZUMAB
     Dosage: UNK UNK,UNK
     Route: 065
  3. COMBIGAN [Concomitant]
     Active Substance: BRIMONIDINE TARTRATE\TIMOLOL MALEATE
     Dosage: UNK UNK,UNK
     Route: 065
  4. TAXOTERE [Suspect]
     Active Substance: DOCETAXEL
     Indication: BREAST CANCER FEMALE
     Dosage: 130 MG,Q3W
     Route: 042
     Dates: start: 20140915, end: 20140915
  5. LISINOPRIL. [Concomitant]
     Active Substance: LISINOPRIL
     Dosage: 5 MG,1X
     Route: 048
     Dates: start: 2007
  6. TAXOTERE [Suspect]
     Active Substance: DOCETAXEL
     Dosage: 130 MG,Q3W
     Route: 042
     Dates: start: 20151229, end: 20151229
  7. CARBOPLATIN. [Concomitant]
     Active Substance: CARBOPLATIN
     Dosage: UNK UNK,UNK
     Route: 065
  8. NEURONTIN [Concomitant]
     Active Substance: GABAPENTIN
     Dosage: 300 MG,TID
     Route: 048
     Dates: start: 20140918
  9. LEVOTHYROXINE. [Concomitant]
     Active Substance: LEVOTHYROXINE
     Dosage: 75 UG,1X
     Route: 048
     Dates: start: 2007
  10. PERTUZUMAB. [Concomitant]
     Active Substance: PERTUZUMAB
     Dosage: UNK UNK,UNK
     Route: 065
  11. ANASTROZOLE. [Concomitant]
     Active Substance: ANASTROZOLE
     Dosage: 1 MG,1X
     Route: 048
     Dates: start: 20150320
  12. ALPHAGAN P [Concomitant]
     Active Substance: BRIMONIDINE TARTRATE
     Dosage: UNK UNK,UNK
     Route: 065
  13. LIDOCAINE;PRILOCAINE [Concomitant]
     Dosage: UNK UNK,UNK
     Route: 061
     Dates: start: 20150209

REACTIONS (1)
  - Alopecia [Not Recovered/Not Resolved]

NARRATIVE: CASE EVENT DATE: 20150629
